FAERS Safety Report 9416597 (Version 3)
Quarter: 2013Q4

REPORT INFORMATION
  Report Type: Spontaneous
  Country: JP (occurrence: None)
  Receive Date: 20130719
  Receipt Date: 20131224
  Transmission Date: 20140711
  Serious: Yes (Life-Threatening, Hospitalization, Disabling)
  Sender: FDA-Public Use
  Company Number: JP-012343

PATIENT
  Age: 83 Year
  Sex: Male

DRUGS (4)
  1. DEGARELIX (GONAX) [Suspect]
     Indication: PROSTATE CANCER
     Route: 058
     Dates: start: 20130523, end: 20130523
  2. BICALUTAMIDE [Concomitant]
  3. CELESTAMINE [Concomitant]
  4. CALONAL [Concomitant]

REACTIONS (8)
  - Pancytopenia [None]
  - Pyrexia [None]
  - Altered state of consciousness [None]
  - Pneumonia [None]
  - Septic shock [None]
  - Disseminated intravascular coagulation [None]
  - Myelodysplastic syndrome [None]
  - Waldenstrom^s macroglobulinaemia [None]
